FAERS Safety Report 15334628 (Version 1)
Quarter: 2018Q3

REPORT INFORMATION
  Report Type: Spontaneous
  Country: US (occurrence: US)
  Receive Date: 20180830
  Receipt Date: 20180830
  Transmission Date: 20181010
  Serious: Yes (Other)
  Sender: FDA-Public Use
  Company Number: US-FRESENIUS KABI-FK201809099

PATIENT
  Age: 44 Year
  Sex: Male
  Weight: 90.4 kg

DRUGS (1)
  1. DIPRIVAN [Suspect]
     Active Substance: PROPOFOL
     Indication: SEDATION
     Dosage: STARTED AT 10 MCG/KG/MIN, SLOWLY INCREASING TO 30 MCG/KG/MIN.
     Route: 042
     Dates: start: 20180821, end: 20180821

REACTIONS (3)
  - Suspected transmission of an infectious agent via product [Unknown]
  - Pyrexia [Recovered/Resolved]
  - Chills [Recovered/Resolved]

NARRATIVE: CASE EVENT DATE: 20180821
